FAERS Safety Report 9828611 (Version 1)
Quarter: 2013Q4

REPORT INFORMATION
  Report Type: Spontaneous
  Country: US (occurrence: None)
  Receive Date: 20131120
  Receipt Date: 20131120
  Transmission Date: 20140711
  Serious: No
  Sender: FDA-Public Use
  Company Number: 1000047493

PATIENT
  Age: 24 Year
  Sex: Female
  Weight: 68.2 kg

DRUGS (2)
  1. VIIBRYD [Suspect]
     Indication: DEPRESSION
     Dosage: 10 MG (10 MG, 1 IN 1 D), ORAL
     Route: 048
     Dates: start: 20130501, end: 20130507
  2. VIIBRYD [Suspect]
     Indication: DEPRESSION
     Dosage: 20 MG (20 MG, 1 IN 1 D), ORAL
     Route: 048
     Dates: start: 20130508, end: 20130513

REACTIONS (7)
  - Insomnia [None]
  - Feeling abnormal [None]
  - Abdominal pain upper [None]
  - Confusional state [None]
  - Swelling face [None]
  - Eye swelling [None]
  - Mania [None]
